FAERS Safety Report 9113812 (Version 1)
Quarter: 2013Q1

REPORT INFORMATION
  Report Type: Spontaneous
  Country: JP (occurrence: JP)
  Receive Date: 20130208
  Receipt Date: 20130208
  Transmission Date: 20140127
  Serious: Yes (Other)
  Sender: FDA-Public Use
  Company Number: JP-ASTRAZENECA-2013SE08207

PATIENT
  Age: 73 Year
  Sex: Female

DRUGS (5)
  1. NEXIUM [Suspect]
     Route: 048
     Dates: start: 20121101, end: 20130126
  2. CEREKINON [Concomitant]
     Route: 065
     Dates: start: 20121101
  3. LAC-B [Concomitant]
     Route: 065
     Dates: start: 20121101
  4. LIPITOR [Concomitant]
     Route: 065
  5. SELBEX [Concomitant]
     Route: 065

REACTIONS (1)
  - Colitis ischaemic [Recovered/Resolved]
